FAERS Safety Report 18197447 (Version 1)
Quarter: 2020Q3

REPORT INFORMATION
  Report Type: Other
  Country: CN (occurrence: CN)
  Receive Date: 20200826
  Receipt Date: 20200826
  Transmission Date: 20201103
  Serious: Yes (Other)
  Sender: FDA-Public Use
  Company Number: CN-ROCHE-2663275

PATIENT
  Sex: Female

DRUGS (3)
  1. BEVACIZUMAB. [Suspect]
     Active Substance: BEVACIZUMAB
     Indication: MALIGNANT ASCITES
     Dosage: FOR 8 WEEKS
     Route: 033
  2. CISPLATIN. [Concomitant]
     Active Substance: CISPLATIN
  3. TROPISETRON [Concomitant]
     Active Substance: TROPISETRON

REACTIONS (1)
  - Myelosuppression [Unknown]
